FAERS Safety Report 14971375 (Version 1)
Quarter: 2018Q2

REPORT INFORMATION
  Report Type: Spontaneous
  Country: US (occurrence: US)
  Receive Date: 20180514
  Receipt Date: 20180514
  Transmission Date: 20180711
  Serious: Yes (Death)
  Sender: FDA-Public Use
  Company Number: None

PATIENT
  Age: 65 Year
  Sex: Female
  Weight: 65.25 kg

DRUGS (2)
  1. HIGH BLOOD PRESSURE MED [Concomitant]
  2. LEVAQUIN [Suspect]
     Active Substance: LEVOFLOXACIN
     Indication: PULMONARY CONGESTION
     Dosage: ?          QUANTITY:1 CAPSULE(S);?
     Route: 048
     Dates: start: 20180327, end: 20180327

REACTIONS (3)
  - Dysarthria [None]
  - Insomnia [None]
  - Gun shot wound [None]

NARRATIVE: CASE EVENT DATE: 20180328
